FAERS Safety Report 4644114-X (Version None)
Quarter: 2005Q2

REPORT INFORMATION
  Report Type: 
  Country: None (occurrence: None)
  Receive Date: 20050425
  Receipt Date: 20050322
  Transmission Date: 20051028
  Serious: Yes (Other)
  Sender: FDA-Public Use
  Company Number: US-GLAXOSMITHKLINE-A0550856A

PATIENT
  Age: 4 Year
  Sex: Male

DRUGS (4)
  1. AUGMENTIN ES-600 [Suspect]
     Indication: OTITIS MEDIA
     Dosage: 6ML TWICE PER DAY
     Route: 048
     Dates: start: 20050113
  2. CLARITIN [Concomitant]
  3. FLONASE [Concomitant]
  4. ALBUTEROL [Concomitant]

REACTIONS (3)
  - DERMATITIS ALLERGIC [None]
  - OEDEMA PERIPHERAL [None]
  - SKIN LESION [None]
